FAERS Safety Report 24236125 (Version 2)
Quarter: 2025Q3

REPORT INFORMATION
  Report Type: Report from Study
  Country: CA (occurrence: CA)
  Receive Date: 20240822
  Receipt Date: 20250909
  Transmission Date: 20251021
  Serious: Yes (Death, Other)
  Sender: TAKEDA
  Company Number: CA-TAKEDA-2020TUS032018

PATIENT
  Sex: Male

DRUGS (11)
  1. IXAZOMIB [Suspect]
     Active Substance: IXAZOMIB
     Indication: Plasma cell myeloma
  2. IXAZOMIB [Suspect]
     Active Substance: IXAZOMIB
  3. DEXAMETHASONE [Suspect]
     Active Substance: DEXAMETHASONE
     Indication: Plasma cell myeloma
  4. POMALYST [Suspect]
     Active Substance: POMALIDOMIDE
     Indication: Plasma cell myeloma
  5. TAMSULOSIN [Concomitant]
     Active Substance: TAMSULOSIN
  6. PREGABALIN [Concomitant]
     Active Substance: PREGABALIN
  7. PRAVASTATIN [Concomitant]
     Active Substance: PRAVASTATIN
  8. DUTASTERIDE [Concomitant]
     Active Substance: DUTASTERIDE
  9. BISOPROLOL [Concomitant]
     Active Substance: BISOPROLOL
  10. ELIQUIS [Concomitant]
     Active Substance: APIXABAN
  11. BILASTINE [Concomitant]
     Active Substance: BILASTINE

REACTIONS (3)
  - Pneumonia [Fatal]
  - Plasma cell myeloma [Unknown]
  - Off label use [Unknown]
